FAERS Safety Report 4988261-1 (Version None)
Quarter: 2006Q2

REPORT INFORMATION
  Report Type: 
  Country: None (occurrence: None)
  Receive Date: 20060425
  Receipt Date: 20060421
  Transmission Date: 20061013
  Serious: Yes (Other)
  Sender: FDA-Public Use
  Company Number: THQ2006A00330

PATIENT
  Age: 76 Year
  Sex: Male

DRUGS (5)
  1. ACTOS [Suspect]
     Indication: DIABETES MELLITUS
     Dosage: 30 MG (15 MG, 2 IN 1 D);
     Dates: start: 20050701
  2. FLUTICASONE PROPIONATE [Concomitant]
  3. FOLIC ACID [Concomitant]
  4. METFORMIN [Concomitant]
  5. SPIRIVA [Concomitant]

REACTIONS (1)
  - MYELODYSPLASTIC SYNDROME [None]
